FAERS Safety Report 6710735-3 (Version None)
Quarter: 2010Q2

REPORT INFORMATION
  Report Type: 
  Country: None (occurrence: None)
  Receive Date: 20100504
  Receipt Date: 20100504
  Transmission Date: 20101027
  Serious: No
  Sender: FDA-Public Use
  Company Number: None

PATIENT
  Age: 52 Year
  Sex: Male
  Weight: 82.5547 kg

DRUGS (4)
  1. ROSOUVASTATIN [Suspect]
     Indication: BLOOD CHOLESTEROL INCREASED
  2. ROSOUVASTATIN [Suspect]
     Indication: BLOOD TRIGLYCERIDES
  3. ROSOUVASTATIN [Suspect]
     Indication: LOW DENSITY LIPOPROTEIN
  4. SEMISTATIN [Suspect]

REACTIONS (7)
  - DISORIENTATION [None]
  - DRUG HYPERSENSITIVITY [None]
  - FEAR [None]
  - FEELING ABNORMAL [None]
  - MEMORY IMPAIRMENT [None]
  - MYALGIA [None]
  - PANIC REACTION [None]
